FAERS Safety Report 18307861 (Version 2)
Quarter: 2020Q4

REPORT INFORMATION
  Report Type: Report from Study
  Country: US (occurrence: US)
  Receive Date: 20200924
  Receipt Date: 20201120
  Transmission Date: 20210113
  Serious: Yes (Hospitalization, Other)
  Sender: FDA-Public Use
  Company Number: US-ASTRAZENECA-2020SF19910

PATIENT
  Age: 63 Year
  Sex: Female

DRUGS (3)
  1. ALBUTEROL. [Concomitant]
     Active Substance: ALBUTEROL
     Dosage: DOSE UNKNOWN, AS NEEDED
     Route: 065
  2. SYMBICORT [Suspect]
     Active Substance: BUDESONIDE\FORMOTEROL FUMARATE DIHYDRATE
     Indication: ASTHMA
     Dosage: 160/4.5 MICROGRAMS, 2 PUFFS TWICE DAILY
     Route: 055
  3. SYMBICORT [Suspect]
     Active Substance: BUDESONIDE\FORMOTEROL FUMARATE DIHYDRATE
     Indication: ASTHMA
     Dosage: 160/4.5 MICROGRAMS, 1 PUFF TWICE DAILY
     Route: 055

REACTIONS (8)
  - Chest pain [Unknown]
  - Device malfunction [Unknown]
  - Fungal infection [Recovered/Resolved with Sequelae]
  - Dyspnoea [Unknown]
  - Incorrect dose administered [Unknown]
  - Breast cancer [Unknown]
  - Atrial fibrillation [Unknown]
  - Device use error [Unknown]

NARRATIVE: CASE EVENT DATE: 20200915
